FAERS Safety Report 4808776-6 (Version None)
Quarter: 2005Q4

REPORT INFORMATION
  Report Type: 
  Country: None (occurrence: None)
  Receive Date: 20051020
  Receipt Date: 20051020
  Transmission Date: 20060501
  Serious: Yes (Death)
  Sender: FDA-Public Use
  Company Number: None

PATIENT
  Sex: Male
  Weight: 94.1 kg

DRUGS (11)
  1. DAUNORUBICIN [Suspect]
     Indication: PRECURSOR B-LYMPHOBLASTIC LYMPHOMA
     Dosage: SEE IMAGE
     Dates: start: 20050722, end: 20050724
  2. PREDNISONE [Suspect]
     Dosage: SEE IMAGE
     Dates: start: 20050722, end: 20050808
  3. VINCRISTINE [Suspect]
     Dosage: SEE IMAGE
     Dates: start: 20050722, end: 20050808
  4. ARA-C [Suspect]
     Dosage: SEE IMAGE
     Dates: start: 20050722
  5. METHOTREXATE [Suspect]
     Dosage: SEE IMAGE
     Dates: start: 20050808, end: 20050808
  6. METHOTREXATE [Suspect]
     Dosage: SEE IMAGE
     Dates: start: 20050722
  7. CYTOXAN [Suspect]
     Dosage: SEE IMAGE
     Dates: start: 20050722
  8. FLUCONAZOLE [Concomitant]
  9. PERCOCET [Concomitant]
  10. PREVACID [Concomitant]
  11. SEPTRA DS [Concomitant]

REACTIONS (6)
  - CHEST PAIN [None]
  - GASTRITIS [None]
  - INFECTION [None]
  - LOSS OF CONSCIOUSNESS [None]
  - NEUTROPENIA [None]
  - PYREXIA [None]
